FAERS Safety Report 4285901-X (Version None)
Quarter: 2004Q1

REPORT INFORMATION
  Report Type: 
  Country: None (occurrence: None)
  Receive Date: 20040203
  Receipt Date: 20040122
  Transmission Date: 20041129
  Serious: Yes (Death, Hospitalization)
  Sender: FDA-Public Use
  Company Number: 02100-JPN-04-0013

PATIENT
  Age: 89 Year
  Sex: Male

DRUGS (11)
  1. CILOSTAZOL [Suspect]
     Indication: CEREBROVASCULAR ACCIDENT PROPHYLAXIS
     Dosage: 100 MG
     Route: 048
     Dates: start: 20030101, end: 20031126
  2. ISOSORBIDE DINITRATE [Concomitant]
  3. FERROUS CITRATE [Concomitant]
  4. SENNOSIDE [Concomitant]
  5. HALOPERIDOL [Concomitant]
  6. NITRAZEPAM [Concomitant]
  7. TRICHLORMETHIAZIDE [Concomitant]
  8. FAMOTIDINE [Concomitant]
  9. NICARDIPINE HYDROCHLORIDE [Concomitant]
  10. NICERGOLINE [Concomitant]
  11. DIGESTIVE ENZYME PREPARATIONS [Concomitant]

REACTIONS (4)
  - ACUTE MYOCARDIAL INFARCTION [None]
  - ELECTROCARDIOGRAM T WAVE INVERSION [None]
  - PYREXIA [None]
  - TACHYPNOEA [None]
